FAERS Safety Report 8366110-1 (Version None)
Quarter: 2012Q2

REPORT INFORMATION
  Report Type: 
  Country: None (occurrence: None)
  Receive Date: 20120516
  Receipt Date: 20120516
  Transmission Date: 20120825
  Serious: Yes (Other)
  Sender: FDA-Public Use
  Company Number: None

PATIENT
  Age: 50 Year
  Sex: Male
  Weight: 47.6277 kg

DRUGS (1)
  1. MUPIROCIN [Suspect]
     Indication: SKIN CANCER
     Dosage: SM AMT 70 AFFECTED AREAS 3 TIMES DAILY
     Dates: start: 20120422, end: 20120424

REACTIONS (2)
  - APPLICATION SITE PAIN [None]
  - APPLICATION SITE PRURITUS [None]
